FAERS Safety Report 10188837 (Version 1)
Quarter: 2014Q2

REPORT INFORMATION
  Report Type: Spontaneous
  Country: US (occurrence: US)
  Receive Date: 20140522
  Receipt Date: 20140522
  Transmission Date: 20141212
  Serious: Yes (Other)
  Sender: FDA-Public Use
  Company Number: US-ROXANE LABORATORIES, INC.-2014-RO-00773RO

PATIENT
  Sex: Male

DRUGS (2)
  1. PREDNISONE [Suspect]
     Indication: PULMONARY SARCOIDOSIS
     Route: 065
     Dates: start: 2008
  2. VORICONAZOLE [Suspect]
     Indication: BRONCHOPULMONARY ASPERGILLOSIS
     Dosage: 400 MG
     Route: 065

REACTIONS (3)
  - Lentigo [Unknown]
  - Melanocytic hyperplasia [Unknown]
  - Photosensitivity reaction [Unknown]
